FAERS Safety Report 9927066 (Version 1)
Quarter: 2014Q1

REPORT INFORMATION
  Report Type: Spontaneous
  Country: US (occurrence: US)
  Receive Date: 20140226
  Receipt Date: 20140226
  Transmission Date: 20141002
  Serious: No
  Sender: FDA-Public Use
  Company Number: US-AMGEN-USASP2013091272

PATIENT
  Age: 44 Year
  Sex: Male
  Weight: 133.79 kg

DRUGS (7)
  1. ENBREL [Suspect]
     Indication: PRODUCT USED FOR UNKNOWN INDICATION
     Dosage: 50 MG, QWK
     Route: 065
     Dates: end: 201309
  2. ONGLYZA [Concomitant]
     Dosage: 2.5 MG, UNK
  3. LOSARTAN POTASSIUM [Concomitant]
     Dosage: 25 MG, UNK
  4. LEVOTHYROXIN [Concomitant]
     Dosage: 50 MCG
  5. VITAMIN D3 [Concomitant]
     Dosage: 2000 UNIT, UNK
  6. METFORMIN [Concomitant]
     Dosage: 500 MG, UNK
  7. GLYBURIDE [Concomitant]
     Dosage: 2.5 MG, UNK

REACTIONS (2)
  - Drug effect incomplete [Unknown]
  - Psoriasis [Unknown]
